FAERS Safety Report 16760130 (Version 1)
Quarter: 2019Q4

REPORT INFORMATION
  Report Type: Spontaneous
  Country: US (occurrence: US)
  Receive Date: 20190829
  Receipt Date: 20190829
  Transmission Date: 20200122
  Serious: Yes (Hospitalization)
  Sender: FDA-Public Use
  Company Number: None

PATIENT
  Age: 71 Year
  Sex: Female
  Weight: 75.1 kg

DRUGS (1)
  1. CARTIA XT [Suspect]
     Active Substance: DILTIAZEM HYDROCHLORIDE
     Indication: HYPERTENSION
     Route: 048
     Dates: start: 20190817, end: 20190822

REACTIONS (16)
  - Rash [None]
  - Dysuria [None]
  - Vulval disorder [None]
  - Dysphagia [None]
  - Skin lesion [None]
  - Pollakiuria [None]
  - Dysphonia [None]
  - Oropharyngeal pain [None]
  - Headache [None]
  - Ear pruritus [None]
  - Chills [None]
  - White blood cell count increased [None]
  - Throat tightness [None]
  - Cough [None]
  - Acute generalised exanthematous pustulosis [None]
  - Pruritus [None]

NARRATIVE: CASE EVENT DATE: 20190824
